FAERS Safety Report 23327554 (Version 1)
Quarter: 2023Q4

REPORT INFORMATION
  Report Type: Spontaneous
  Country: FR (occurrence: FR)
  Receive Date: 20231221
  Receipt Date: 20231221
  Transmission Date: 20240110
  Serious: Yes (Other)
  Sender: FDA-Public Use
  Company Number: FR-SUN PHARMACEUTICAL INDUSTRIES LTD-2023RR-424424

PATIENT
  Age: 3 Day
  Sex: Female
  Weight: 3.47 kg

DRUGS (3)
  1. SERTRALINE [Suspect]
     Active Substance: SERTRALINE HYDROCHLORIDE
     Indication: Depression
     Dosage: 25 MILLIGRAM, DAILY
     Route: 064
     Dates: start: 202302, end: 20230811
  2. GABAPENTIN [Suspect]
     Active Substance: GABAPENTIN
     Indication: Neuralgia
     Dosage: 100 MILLIGRAM, DAILY
     Route: 064
     Dates: start: 20221114, end: 20230811
  3. PROPRANOLOL [Concomitant]
     Active Substance: PROPRANOLOL HYDROCHLORIDE
     Indication: Cluster headache
     Dosage: 20 MILLIGRAM, DAILY
     Route: 064
     Dates: start: 20221114, end: 20230811

REACTIONS (1)
  - Hypertonia neonatal [Unknown]

NARRATIVE: CASE EVENT DATE: 20230814
